FAERS Safety Report 10238561 (Version 1)
Quarter: 2014Q2

REPORT INFORMATION
  Report Type: Spontaneous
  Country: GB (occurrence: None)
  Receive Date: 20140612
  Receipt Date: 20140612
  Transmission Date: 20141212
  Serious: Yes (Other)
  Sender: FDA-Public Use
  Company Number: FK201402277

PATIENT
  Age: 51 Year
  Sex: Female
  Weight: 64 kg

DRUGS (9)
  1. ONDANSETRON (MANUFACTURER UNKNOWN) (ONDANSETRON) (ONDANSETRON) [Suspect]
     Indication: NAUSEA
     Route: 048
     Dates: start: 20140314
  2. ADCAL-DC [Concomitant]
  3. ELLESTE DUET [Concomitant]
  4. FOLIC ACID (FOLIC ACID) [Concomitant]
  5. LOFEPRAMINE (LOFEPRAMINE) [Concomitant]
  6. METHOTREXATE (METHOTREXATE) [Concomitant]
  7. OMEPRAZOLE (OMEPRAZOLE) [Concomitant]
  8. PARACETAMOL (PARACETAMOL) [Concomitant]
  9. SULPHASALAZINE (SULFASALAZINE) [Concomitant]

REACTIONS (3)
  - Abdominal pain [None]
  - Decreased appetite [None]
  - Constipation [None]
